FAERS Safety Report 12281517 (Version 1)
Quarter: 2016Q2

REPORT INFORMATION
  Report Type: Spontaneous
  Country: US (occurrence: None)
  Receive Date: 20160418
  Receipt Date: 20160418
  Transmission Date: 20160815
  Serious: Yes (Other)
  Sender: FDA-Public Use
  Company Number: None

PATIENT
  Age: 72 Year
  Sex: Male
  Weight: 77.11 kg

DRUGS (7)
  1. FLOUROURACIL NACL 0.9%, .5 ML [Suspect]
     Active Substance: FLUOROURACIL SODIUM
     Indication: RECTAL CANCER STAGE IV
     Dosage: .5 ML CHEMO INFUSION
     Dates: start: 20160302, end: 20160412
  2. PRILOSEC [Concomitant]
     Active Substance: OMEPRAZOLE MAGNESIUM
  3. LANTUS [Concomitant]
     Active Substance: INSULIN GLARGINE
  4. AMLODIPINE [Concomitant]
     Active Substance: AMLODIPINE BESYLATE
  5. LIPITOR [Concomitant]
     Active Substance: ATORVASTATIN CALCIUM
  6. HYDROCHLOROTHIZAZIDE [Concomitant]
  7. HYDROCHODONE [Concomitant]

REACTIONS (6)
  - Memory impairment [None]
  - Indifference [None]
  - Abnormal behaviour [None]
  - Device failure [None]
  - Cognitive disorder [None]
  - Aggression [None]

NARRATIVE: CASE EVENT DATE: 20160322
